FAERS Safety Report 10895759 (Version 2)
Quarter: 2015Q2

REPORT INFORMATION
  Report Type: Spontaneous
  Country: IT (occurrence: IT)
  Receive Date: 20150307
  Receipt Date: 20150525
  Transmission Date: 20150821
  Serious: Yes (Hospitalization)
  Sender: FDA-Public Use
  Company Number: IT-ACCORD-029022

PATIENT
  Age: 85 Year
  Sex: Female

DRUGS (5)
  1. TRIATEC [Suspect]
     Active Substance: RAMIPRIL
     Indication: HYPERTENSION
     Dosage: STRENGTH: 2.5 MG
     Route: 048
     Dates: start: 20090101, end: 20150222
  2. AMLODIPINE [Suspect]
     Active Substance: AMLODIPINE BESYLATE
     Indication: PRODUCT USED FOR UNKNOWN INDICATION
     Route: 048
     Dates: start: 20140901, end: 20150222
  3. CONGESCOR [Concomitant]
     Active Substance: BISOPROLOL
  4. CARDIRENE [Concomitant]
     Active Substance: ASPIRIN DL-LYSINE
     Route: 048
  5. LASITONE [Suspect]
     Active Substance: FUROSEMIDE\SPIRONOLACTONE
     Indication: PRODUCT USED FOR UNKNOWN INDICATION
     Dosage: STRENGTH: 25 MG+ 37 MG
     Route: 048
     Dates: start: 20150101, end: 20150222

REACTIONS (3)
  - Orthostatic hypotension [Recovering/Resolving]
  - Syncope [Recovering/Resolving]
  - Renal failure [Recovering/Resolving]

NARRATIVE: CASE EVENT DATE: 20150222
